FAERS Safety Report 13677958 (Version 1)
Quarter: 2017Q2

REPORT INFORMATION
  Report Type: Spontaneous
  Country: US (occurrence: US)
  Receive Date: 20170622
  Receipt Date: 20170622
  Transmission Date: 20170830
  Serious: Yes (Other)
  Sender: FDA-Public Use
  Company Number: US-HORIZON-KRY-0050-2017

PATIENT
  Sex: Male

DRUGS (1)
  1. KRYSTEXXA [Suspect]
     Active Substance: PEGLOTICASE
     Indication: GOUT
     Dosage: IV INFUSION OF 8 MG/ML EVERY 2 WEEKS

REACTIONS (5)
  - Rash [Unknown]
  - Pruritus [Unknown]
  - Wheezing [Unknown]
  - Chest discomfort [Unknown]
  - Palpitations [Unknown]
